FAERS Safety Report 9377746 (Version 4)
Quarter: 2013Q4

REPORT INFORMATION
  Report Type: Spontaneous
  Country: FR (occurrence: FR)
  Receive Date: 20130701
  Receipt Date: 20131209
  Transmission Date: 20140711
  Serious: Yes (Hospitalization, Other)
  Sender: FDA-Public Use
  Company Number: FR-PFIZER INC-2013190333

PATIENT
  Age: 78 Year
  Sex: Male

DRUGS (7)
  1. TRIATEC [Suspect]
     Dosage: 1.25 MG, DAILY
     Route: 048
     Dates: start: 20130424, end: 20130519
  2. AMOXICILLINE [Suspect]
     Indication: BACTERAEMIA
     Dosage: 12 G, DAILY
     Route: 065
     Dates: start: 20130424
  3. AMOXICILLINE [Suspect]
     Dosage: 16 G, DAILY
     Route: 065
     Dates: start: 20130506, end: 20130519
  4. AMOXICILLINE [Suspect]
     Dosage: UNK
     Route: 065
     Dates: start: 20130520, end: 20130520
  5. GENTAMICIN [Concomitant]
     Indication: BACTERAEMIA
     Dosage: 3 MG/KG, UNK
     Route: 042
     Dates: start: 20130424, end: 20130426
  6. LASILIX FAIBLE [Concomitant]
     Dosage: UNK
     Dates: start: 20130504, end: 20130519
  7. INEGY [Concomitant]
     Dosage: UNK
     Dates: end: 20130519

REACTIONS (3)
  - Tubulointerstitial nephritis [Recovered/Resolved]
  - Renal failure acute [Recovered/Resolved]
  - Atrial fibrillation [Unknown]
